FAERS Safety Report 4930233-7 (Version None)
Quarter: 2006Q1

REPORT INFORMATION
  Report Type: 
  Country: None (occurrence: None)
  Receive Date: 20060228
  Receipt Date: 20060206
  Transmission Date: 20060701
  Serious: Yes (Other)
  Sender: FDA-Public Use
  Company Number: FR 051107459

PATIENT
  Age: 76 Year
  Sex: Female

DRUGS (6)
  1. FORTEO [Suspect]
     Indication: OSTEOPOROSIS
     Dosage: 20 UG, DAILY (1/D), SUBCUTANEOUS
     Route: 058
     Dates: start: 20050525, end: 20051122
  2. AMLODIPINE BESYLATE [Concomitant]
  3. CYCLO [Concomitant]
  4. DUSPATALIN (MEBEVERINE HYDROCHLORIDE) [Concomitant]
  5. DI-ANTALVIC [Concomitant]
  6. FORTEO PEN, (FORTEO PEN) PEN, DISPOSABLE [Concomitant]

REACTIONS (2)
  - BONE PAIN [None]
  - GAMMA-GLUTAMYLTRANSFERASE INCREASED [None]
